FAERS Safety Report 7908504-1 (Version None)
Quarter: 2011Q4

REPORT INFORMATION
  Report Type: 
  Country: None (occurrence: None)
  Receive Date: 20111111
  Receipt Date: 20111017
  Transmission Date: 20120403
  Serious: No
  Sender: FDA-Public Use
  Company Number: US-BAYER-2011-101401

PATIENT
  Sex: Female

DRUGS (2)
  1. MIRENA [Suspect]
     Indication: GENITAL HAEMORRHAGE
  2. MIRENA [Suspect]
     Indication: CONTRACEPTION
     Dosage: 20 MCG/24HR, CONT
     Dates: start: 20101201

REACTIONS (2)
  - MENSTRUATION IRREGULAR [None]
  - POLYMENORRHOEA [None]
